FAERS Safety Report 15073378 (Version 1)
Quarter: 2018Q2

REPORT INFORMATION
  Report Type: Spontaneous
  Country: US (occurrence: US)
  Receive Date: 20180606
  Receipt Date: 20180606
  Transmission Date: 20180711
  Serious: No
  Sender: FDA-Public Use
  Company Number: None

PATIENT
  Age: 76 Year
  Sex: Male

DRUGS (12)
  1. NEXAVAR [Suspect]
     Active Substance: SORAFENIB
     Indication: HEPATIC NEOPLASM
     Route: 048
     Dates: start: 20180515
  2. VITAMIN D [Concomitant]
     Active Substance: CHOLECALCIFEROL
  3. TOUJEO SOLO [Concomitant]
  4. PROTONIX PAK [Concomitant]
  5. KOMBIGLYZ XR [Concomitant]
  6. RANITIDINE. [Concomitant]
     Active Substance: RANITIDINE
  7. SUCRALFATE. [Concomitant]
     Active Substance: SUCRALFATE
  8. TAMSULOSIN [Concomitant]
     Active Substance: TAMSULOSIN
  9. OMEPRAZOLE. [Concomitant]
     Active Substance: OMEPRAZOLE
  10. METANX [Concomitant]
     Active Substance: LEVOMEFOLATE CALCIUM\METHYLCOBALAMIN\PYRIDOXAL PHOSPHATE ANHYDROUS
  11. DEMADEX [Concomitant]
     Active Substance: TORSEMIDE
  12. WARFARIN [Concomitant]
     Active Substance: WARFARIN

REACTIONS (1)
  - Pancreatitis acute [None]

NARRATIVE: CASE EVENT DATE: 20180601
